FAERS Safety Report 6942279-8 (Version None)
Quarter: 2010Q3

REPORT INFORMATION
  Report Type: 
  Country: None (occurrence: None)
  Receive Date: 20100823
  Receipt Date: 20100810
  Transmission Date: 20110219
  Serious: Yes (Hospitalization, Other)
  Sender: FDA-Public Use
  Company Number: 012707

PATIENT
  Sex: Female
  Weight: 89.7 kg

DRUGS (14)
  1. KEPPRA [Suspect]
     Dosage: (1500 MG BID ORAL)
     Route: 048
  2. UNKNOWN [Suspect]
     Indication: PROPHYLAXIS
     Dosage: SEE IMAGE
     Dates: start: 20100203, end: 20100209
  3. UNKNOWN [Suspect]
     Indication: PROPHYLAXIS
     Dosage: SEE IMAGE
     Dates: start: 20100210, end: 20100216
  4. UNKNOWN [Suspect]
     Indication: PROPHYLAXIS
     Dosage: SEE IMAGE
     Dates: start: 20100217, end: 20100223
  5. UNKNOWN [Suspect]
     Indication: PROPHYLAXIS
     Dosage: SEE IMAGE
     Dates: start: 20100224
  6. UNKNOWN [Suspect]
     Dosage: (QD, 5 DAYS A WEEK, X 3 WEEKS, ROUTE - EXTERNAL BEAM, 2D)
     Dates: start: 20100203, end: 20100219
  7. DECADRON [Suspect]
     Dosage: (4 MG BID ORAL)
     Route: 048
     Dates: start: 20100129
  8. MS CONTIN [Suspect]
     Dosage: (45 MG BID ORAL)
     Route: 048
     Dates: start: 20100129
  9. REMERON [Suspect]
     Dosage: (50MG PRN AT BEDTIME ORAL)
     Route: 048
     Dates: start: 20100129
  10. DILANTIN [Suspect]
     Dates: start: 20100129, end: 20100314
  11. LEVAQUIN [Suspect]
  12. ADVAIR HFA [Suspect]
     Dosage: (RESPIRATORY (INHALATION)
     Route: 055
     Dates: start: 20100127
  13. ALBUTEROL [Suspect]
     Dosage: (THRICE DAILY RESPIRATORY (INHALATION))
     Route: 055
     Dates: start: 20100129
  14. SPIRIVA [Suspect]
     Dosage: (1PUFF DAILY RESPIRATORY (INHALATION))
     Route: 055
     Dates: start: 20100129

REACTIONS (1)
  - PULMONARY EMBOLISM [None]
